FAERS Safety Report 15480049 (Version 1)
Quarter: 2018Q4

REPORT INFORMATION
  Report Type: Spontaneous
  Country: PL (occurrence: PL)
  Receive Date: 20181009
  Receipt Date: 20181009
  Transmission Date: 20190205
  Serious: Yes (Other)
  Sender: FDA-Public Use
  Company Number: PHHY2018PL118277

PATIENT
  Age: 65 Year
  Sex: Female
  Weight: 36.8 kg

DRUGS (3)
  1. CARBOPLATIN. [Suspect]
     Active Substance: CARBOPLATIN
     Indication: OVARIAN CANCER
     Route: 065
  2. AVASTIN [Suspect]
     Active Substance: BEVACIZUMAB
     Indication: OVARIAN CANCER
     Dosage: UNK (18 ADMINISTRATIONS)
     Route: 065
  3. PACLITAXEL. [Suspect]
     Active Substance: PACLITAXEL
     Indication: OVARIAN CANCER
     Route: 065

REACTIONS (18)
  - Proteinuria [Unknown]
  - Uterine leiomyoma [Unknown]
  - Gastrointestinal sounds abnormal [Unknown]
  - Dyspnoea [Unknown]
  - Abdominal pain [Unknown]
  - Abdominal tenderness [Unknown]
  - Intestinal obstruction [Unknown]
  - Erythema [Unknown]
  - Peritoneal neoplasm [Unknown]
  - Carbohydrate antigen 125 increased [Unknown]
  - Neutropenia [Unknown]
  - Ascites [Unknown]
  - Hypertension [Recovering/Resolving]
  - Abdominal adhesions [Unknown]
  - Bowel movement irregularity [Unknown]
  - Uterine adhesions [Unknown]
  - Gastrointestinal neoplasm [Unknown]
  - Decreased appetite [Unknown]

NARRATIVE: CASE EVENT DATE: 2018
